FAERS Safety Report 9259454 (Version 1)
Quarter: 2013Q2

REPORT INFORMATION
  Report Type: Report from Study
  Country: DE (occurrence: DE)
  Receive Date: 20130428
  Receipt Date: 20130428
  Transmission Date: 20140414
  Serious: Yes (Other)
  Sender: FDA-Public Use
  Company Number: PHHY2012DE127948

PATIENT
  Sex: Male

DRUGS (8)
  1. AMN107 [Suspect]
     Indication: CHRONIC MYELOID LEUKAEMIA
     Dosage: 600 MG, DAILY
     Route: 048
     Dates: start: 20120912
  2. RAMIPRIL [Concomitant]
     Dates: start: 20100403
  3. DULCOLAX [Concomitant]
     Dates: start: 20121215, end: 20121220
  4. AMLODIPIN [Concomitant]
     Dates: start: 20121204
  5. MAGNESIUM VERLA [Concomitant]
     Dates: start: 20121218
  6. LACTOSE [Concomitant]
     Dates: start: 20130312
  7. MUCOFALK [Concomitant]
     Dates: start: 20130312
  8. TENSOFLUX [Concomitant]
     Dates: start: 20121204

REACTIONS (2)
  - Atrial fibrillation [Not Recovered/Not Resolved]
  - Abdominal pain upper [Recovered/Resolved]
